FAERS Safety Report 7280775-7 (Version None)
Quarter: 2011Q1

REPORT INFORMATION
  Report Type: 
  Country: None (occurrence: None)
  Receive Date: 20110208
  Receipt Date: 20110128
  Transmission Date: 20110831
  Serious: Yes (Death, Hospitalization)
  Sender: FDA-Public Use
  Company Number: FR-ACTELION-A-CH2011-44455

PATIENT
  Sex: Female

DRUGS (6)
  1. TRACLEER [Suspect]
     Indication: PULMONARY ARTERIAL HYPERTENSION
     Dosage: 2.3 MG, QD
     Route: 048
     Dates: start: 20101216, end: 20101219
  2. TRIFLUCAN [Concomitant]
  3. RIVOTRIL [Concomitant]
     Dosage: UNK
     Dates: end: 20101220
  4. REVATIO [Concomitant]
  5. GARDENAL [Concomitant]
  6. LASIX [Concomitant]

REACTIONS (9)
  - ASPARTATE AMINOTRANSFERASE INCREASED [None]
  - HEPATITIS [None]
  - COAGULATION FACTOR V LEVEL DECREASED [None]
  - OXYGEN SATURATION DECREASED [None]
  - LIVER FUNCTION TEST ABNORMAL [None]
  - ALANINE AMINOTRANSFERASE INCREASED [None]
  - PROTHROMBIN TIME SHORTENED [None]
  - GENERAL PHYSICAL HEALTH DETERIORATION [None]
  - RESPIRATORY FAILURE [None]
